FAERS Safety Report 13377023 (Version 1)
Quarter: 2017Q1

REPORT INFORMATION
  Report Type: Spontaneous
  Country: US (occurrence: US)
  Receive Date: 20170328
  Receipt Date: 20170328
  Transmission Date: 20170429
  Serious: Yes (Hospitalization)
  Sender: FDA-Public Use
  Company Number: None

PATIENT
  Age: 67 Year
  Sex: Male
  Weight: 97.49 kg

DRUGS (1)
  1. RITUXIMAB (MO AB C2B8 ANTI CD20, CHIMERIC) [Suspect]
     Active Substance: RITUXIMAB
     Dates: end: 20170125

REACTIONS (11)
  - Atrial fibrillation [None]
  - Septic embolus [None]
  - Pseudomonas test positive [None]
  - Tachycardia [None]
  - Herpes simplex test positive [None]
  - Human rhinovirus test positive [None]
  - Productive cough [None]
  - Dyspnoea [None]
  - Enterovirus test positive [None]
  - Pyrexia [None]
  - Respiratory failure [None]

NARRATIVE: CASE EVENT DATE: 20170321
